FAERS Safety Report 17811640 (Version 1)
Quarter: 2020Q2

REPORT INFORMATION
  Report Type: Spontaneous
  Country: US (occurrence: US)
  Receive Date: 20200521
  Receipt Date: 20200521
  Transmission Date: 20200714
  Serious: No
  Sender: FDA-Public Use
  Company Number: US-ACCORD-155937

PATIENT
  Sex: Male
  Weight: 72.57 kg

DRUGS (2)
  1. BENADRYL [Concomitant]
     Active Substance: DIPHENHYDRAMINE HYDROCHLORIDE
  2. QUETIAPINE ACCORD [Suspect]
     Active Substance: QUETIAPINE
     Indication: BIPOLAR DISORDER
     Dosage: 3 TIMES A DAY

REACTIONS (2)
  - Nasal congestion [Not Recovered/Not Resolved]
  - Sinus congestion [Not Recovered/Not Resolved]
